FAERS Safety Report 18181232 (Version 1)
Quarter: 2020Q3

REPORT INFORMATION
  Report Type: Report from Study
  Country: CA (occurrence: CA)
  Receive Date: 20200821
  Receipt Date: 20200821
  Transmission Date: 20201103
  Serious: Yes (Other)
  Sender: FDA-Public Use
  Company Number: CA-ASTRAZENECA-2020SF02055

PATIENT
  Sex: Male

DRUGS (4)
  1. APIXABAN [Concomitant]
     Active Substance: APIXABAN
     Route: 065
  2. CALQUENCE [Suspect]
     Active Substance: ACALABRUTINIB
     Indication: CHRONIC LYMPHOCYTIC LEUKAEMIA
     Route: 048
     Dates: start: 20200717, end: 20200810
  3. APIXABAN [Concomitant]
     Active Substance: APIXABAN
     Dosage: FURTHER DECREASED BY HALF IN HOSPITAL OVER LAST 24 HOURS.
     Route: 065
  4. APIXABAN [Concomitant]
     Active Substance: APIXABAN
     Route: 065
     Dates: start: 20200807

REACTIONS (5)
  - Joint swelling [Recovering/Resolving]
  - Mass [Unknown]
  - Contusion [Unknown]
  - Haemarthrosis [Recovering/Resolving]
  - Arthritis infective [Recovering/Resolving]
